FAERS Safety Report 7121966-5 (Version None)
Quarter: 2010Q4

REPORT INFORMATION
  Report Type: 
  Country: None (occurrence: None)
  Receive Date: 20101124
  Receipt Date: 20101116
  Transmission Date: 20110411
  Serious: Yes (Other)
  Sender: FDA-Public Use
  Company Number: A0793608A

PATIENT
  Age: 33 Year
  Sex: Male
  Weight: 130.9 kg

DRUGS (1)
  1. AVANDIA [Suspect]
     Dosage: 8MG VARIABLE DOSE
     Route: 048
     Dates: start: 19970101, end: 20070101

REACTIONS (3)
  - CORONARY ARTERY DISEASE [None]
  - ISCHAEMIC CARDIOMYOPATHY [None]
  - MYOCARDIAL INFARCTION [None]
